FAERS Safety Report 10648952 (Version 1)
Quarter: 2014Q4

REPORT INFORMATION
  Report Type: Spontaneous
  Country: PT (occurrence: PT)
  Receive Date: 20141212
  Receipt Date: 20141212
  Transmission Date: 20150529
  Serious: Yes (Hospitalization)
  Sender: FDA-Public Use
  Company Number: PT-ACTELION-A-CH2014-109425

PATIENT
  Age: 56 Year
  Sex: Female
  Weight: 51 kg

DRUGS (9)
  1. TRYPTIZOL [Concomitant]
     Active Substance: AMITRIPTYLINE HYDROCHLORIDE
     Dosage: UNK
     Dates: start: 2014
  2. PROCORALAN [Concomitant]
     Active Substance: IVABRADINE
     Dosage: UNK
     Dates: start: 20131010
  3. TRACLEER [Suspect]
     Active Substance: BOSENTAN\BOSENTAN MONOHYDRATE
     Indication: PULMONARY ARTERIAL HYPERTENSION
     Dosage: 125 MG, UNK
     Route: 048
     Dates: start: 20141030, end: 20141104
  4. VALIUM [Concomitant]
     Active Substance: DIAZEPAM
     Dosage: UNK UNK, TID
     Route: 048
     Dates: start: 2002
  5. WARFARIN [Concomitant]
     Active Substance: WARFARIN
     Indication: ATRIAL FIBRILLATION
     Dosage: 5 MG, UNK
     Route: 048
  6. LEPICORTINOLO [Concomitant]
     Active Substance: PREDNISOLONE
     Indication: SYSTEMIC LUPUS ERYTHEMATOSUS
     Dosage: 5 MG, UNK
     Route: 048
  7. DUROGESIC [Concomitant]
     Active Substance: FENTANYL
     Dosage: UNK
     Dates: start: 2014
  8. OMEPRAZOL [Concomitant]
     Active Substance: OMEPRAZOLE
  9. SILDENAFIL. [Concomitant]
     Active Substance: SILDENAFIL
     Indication: PULMONARY ARTERIAL HYPERTENSION
     Dosage: 50 MG, BID
     Route: 048
     Dates: start: 2008

REACTIONS (16)
  - Transaminases increased [Recovered/Resolved]
  - Oedema peripheral [Unknown]
  - Ischaemic hepatitis [Recovered/Resolved]
  - Alanine aminotransferase increased [Recovered/Resolved]
  - Respiratory tract infection [Recovered/Resolved]
  - Gamma-glutamyltransferase increased [Recovered/Resolved]
  - International normalised ratio increased [Recovered/Resolved]
  - Cardiac failure [Recovered/Resolved]
  - Abdominal pain [Recovered/Resolved]
  - Condition aggravated [Unknown]
  - Prothrombin time prolonged [Recovered/Resolved]
  - Drug-induced liver injury [Recovered/Resolved]
  - Aspartate aminotransferase increased [Recovered/Resolved]
  - Right ventricular failure [Unknown]
  - Pulmonary arterial hypertension [Unknown]
  - Dyspnoea [Unknown]

NARRATIVE: CASE EVENT DATE: 20141104
